FAERS Safety Report 5451112-5 (Version None)
Quarter: 2007Q3

REPORT INFORMATION
  Report Type: 
  Country: None (occurrence: None)
  Receive Date: 20070913
  Receipt Date: 20070911
  Transmission Date: 20080115
  Serious: Yes (Hospitalization)
  Sender: FDA-Public Use
  Company Number: DE-BRISTOL-MYERS SQUIBB COMPANY-13900956

PATIENT
  Age: 30 Year
  Sex: Female
  Weight: 80 kg

DRUGS (9)
  1. CYCLOPHOSPHAMIDE [Suspect]
     Indication: BREAST CANCER
     Route: 042
     Dates: start: 20070823
  2. PACLITAXEL [Suspect]
     Indication: BREAST CANCER
     Route: 042
     Dates: start: 20070712, end: 20070809
  3. EPIRUBICIN [Suspect]
     Indication: BREAST CANCER
     Route: 042
     Dates: start: 20070624, end: 20070628
  4. DARBEPOETIN ALFA [Concomitant]
     Route: 058
     Dates: start: 20070809
  5. GRANISETRON  HCL [Concomitant]
     Route: 048
     Dates: start: 20070524
  6. MESNA [Concomitant]
     Dosage: 716MG-IV
     Route: 042
     Dates: start: 20070823
  7. MESNA [Concomitant]
     Route: 048
     Dates: start: 20070823
  8. DEXAMETHASONE 0.5MG TAB [Concomitant]
     Dosage: 4 MG PO
     Route: 042
     Dates: start: 20070524
  9. DEXAMETHASONE 0.5MG TAB [Concomitant]
     Route: 048
     Dates: start: 20070524

REACTIONS (1)
  - PYREXIA [None]
